FAERS Safety Report 9113219 (Version 1)
Quarter: 2013Q1

REPORT INFORMATION
  Report Type: Spontaneous
  Country: US (occurrence: US)
  Receive Date: 20130211
  Receipt Date: 20130211
  Transmission Date: 20140127
  Serious: Yes (Other)
  Sender: FDA-Public Use
  Company Number: US-ELI_LILLY_AND_COMPANY-US201209005540

PATIENT
  Sex: Female
  Weight: 104.31 kg

DRUGS (19)
  1. BYDUREON [Suspect]
     Indication: TYPE 2 DIABETES MELLITUS
     Dosage: 2 MG, WEEKLY (1/W)
     Route: 058
     Dates: start: 2012
  2. BYETTA [Suspect]
     Indication: TYPE 2 DIABETES MELLITUS
     Dosage: 5 UG, BID
     Route: 058
  3. BYETTA [Suspect]
     Dosage: UNK
     Route: 058
  4. ONGLYZA [Concomitant]
     Indication: TYPE 2 DIABETES MELLITUS
     Dosage: 5 MG, QD
     Route: 048
  5. KLONOPIN [Concomitant]
     Dosage: 0.5 MG, EACH EVENING
     Route: 048
  6. PRILOSEC [Concomitant]
     Dosage: 20 MG, QD
     Route: 048
  7. WELLBUTRIN XL [Concomitant]
     Dosage: 300 MG, QD
     Route: 048
  8. VENOLEN [Concomitant]
     Dosage: 1 DF, UNK
  9. SINGULAIR [Concomitant]
     Dosage: 10 MG, QD
     Route: 048
  10. NYSTATIN [Concomitant]
     Dosage: UNK
  11. NEURONTIN                               /USA/ [Concomitant]
     Indication: RESTLESS LEGS SYNDROME
     Dosage: 300 MG, QD
     Route: 048
  12. METFORMIN [Concomitant]
     Indication: TYPE 2 DIABETES MELLITUS
  13. AMITIZA [Concomitant]
     Dosage: 24 MG, BID
     Route: 048
  14. ALBUTEROL SULFATE [Concomitant]
     Dosage: UNK, EVERY 6 HRS
  15. ADVAIR [Concomitant]
     Dosage: 1 DF, UNK
  16. CLARITIN                                /USA/ [Concomitant]
     Dosage: 10 MG, QD
     Route: 048
  17. ZIAC [Concomitant]
     Dosage: UNK
     Dates: end: 2012
  18. ALLEGRA [Concomitant]
  19. VICTOZA [Concomitant]
     Indication: TYPE 2 DIABETES MELLITUS

REACTIONS (17)
  - Hypertension [Recovered/Resolved]
  - Renal disorder [Unknown]
  - Underdose [Recovered/Resolved]
  - Blood glucose increased [Unknown]
  - Malaise [Unknown]
  - Dysphonia [Unknown]
  - Cataract [Unknown]
  - Bronchitis chronic [Not Recovered/Not Resolved]
  - Chest pain [Not Recovered/Not Resolved]
  - Back pain [Not Recovered/Not Resolved]
  - Cystitis [Not Recovered/Not Resolved]
  - Blood cholesterol increased [Unknown]
  - Weight decreased [Not Recovered/Not Resolved]
  - Injection site haemorrhage [Unknown]
  - Injection site bruising [Unknown]
  - Asthenia [Not Recovered/Not Resolved]
  - Abdominal pain upper [Recovered/Resolved]
